FAERS Safety Report 4669581-7 (Version None)
Quarter: 2005Q2

REPORT INFORMATION
  Report Type: 
  Country: None (occurrence: None)
  Receive Date: 20050520
  Receipt Date: 20050505
  Transmission Date: 20051028
  Serious: Yes (Other)
  Sender: FDA-Public Use
  Company Number: 2005S1003233

PATIENT
  Age: 49 Year
  Sex: Male
  Weight: 95.2554 kg

DRUGS (5)
  1. FENTANYL [Suspect]
     Indication: INTERVERTEBRAL DISC OPERATION
     Dosage: 75 MCG/HR; Q3W; TDER
     Dates: start: 20050428, end: 20050504
  2. GABAPENTIN [Concomitant]
  3. CELECOXIB [Concomitant]
  4. TIZANIDINE HCL [Concomitant]
  5. HYDROCHLORIDE [Concomitant]

REACTIONS (4)
  - FEELING ABNORMAL [None]
  - HOMICIDAL IDEATION [None]
  - PERSONALITY DISORDER [None]
  - SUICIDAL IDEATION [None]
